FAERS Safety Report 25405171 (Version 1)
Quarter: 2025Q2

REPORT INFORMATION
  Report Type: Spontaneous
  Country: US (occurrence: US)
  Receive Date: 20250606
  Receipt Date: 20250606
  Transmission Date: 20250717
  Serious: Yes (Other)
  Sender: NOVO NORDISK
  Company Number: US-NOVOPROD-1448315

PATIENT
  Sex: Female

DRUGS (1)
  1. OZEMPIC [Suspect]
     Active Substance: SEMAGLUTIDE
     Indication: Type 2 diabetes mellitus
     Dosage: 0.25 MG, QW
     Route: 058

REACTIONS (7)
  - Dementia Alzheimer^s type [Unknown]
  - Visual impairment [Unknown]
  - Mental disorder [Unknown]
  - Anxiety [Unknown]
  - Malaise [Unknown]
  - Diabetes mellitus inadequate control [Unknown]
  - Inappropriate schedule of product administration [Unknown]
